FAERS Safety Report 25780155 (Version 1)
Quarter: 2025Q3

REPORT INFORMATION
  Report Type: Report from Study
  Country: TH (occurrence: TH)
  Receive Date: 20250909
  Receipt Date: 20250909
  Transmission Date: 20251021
  Serious: Yes (Hospitalization)
  Sender: MYLAN
  Company Number: TH-MYLANLABS-2025M1075522

PATIENT
  Age: 50 Year
  Sex: Female
  Weight: 48.1 kg

DRUGS (88)
  1. DOLUTEGRAVIR\LAMIVUDINE\TENOFOVIR DISOPROXIL FUMARATE [Suspect]
     Active Substance: DOLUTEGRAVIR\LAMIVUDINE\TENOFOVIR DISOPROXIL FUMARATE
     Indication: HIV infection
     Dosage: 1 DOSAGE FORM, QD
     Dates: start: 20250328
  2. DOLUTEGRAVIR\LAMIVUDINE\TENOFOVIR DISOPROXIL FUMARATE [Suspect]
     Active Substance: DOLUTEGRAVIR\LAMIVUDINE\TENOFOVIR DISOPROXIL FUMARATE
     Dosage: 1 DOSAGE FORM, QD
     Route: 048
     Dates: start: 20250328
  3. DOLUTEGRAVIR\LAMIVUDINE\TENOFOVIR DISOPROXIL FUMARATE [Suspect]
     Active Substance: DOLUTEGRAVIR\LAMIVUDINE\TENOFOVIR DISOPROXIL FUMARATE
     Dosage: 1 DOSAGE FORM, QD
     Route: 048
     Dates: start: 20250328
  4. DOLUTEGRAVIR\LAMIVUDINE\TENOFOVIR DISOPROXIL FUMARATE [Suspect]
     Active Substance: DOLUTEGRAVIR\LAMIVUDINE\TENOFOVIR DISOPROXIL FUMARATE
     Dosage: 1 DOSAGE FORM, QD
     Dates: start: 20250328
  5. CELECOXIB [Concomitant]
     Active Substance: CELECOXIB
     Dates: start: 20250420, end: 20250425
  6. CELECOXIB [Concomitant]
     Active Substance: CELECOXIB
     Route: 065
     Dates: start: 20250420, end: 20250425
  7. CELECOXIB [Concomitant]
     Active Substance: CELECOXIB
     Route: 065
     Dates: start: 20250420, end: 20250425
  8. CELECOXIB [Concomitant]
     Active Substance: CELECOXIB
     Dates: start: 20250420, end: 20250425
  9. DICLOFENAC [Concomitant]
     Active Substance: DICLOFENAC
     Dates: start: 20250420, end: 20250425
  10. DICLOFENAC [Concomitant]
     Active Substance: DICLOFENAC
     Route: 065
     Dates: start: 20250420, end: 20250425
  11. DICLOFENAC [Concomitant]
     Active Substance: DICLOFENAC
     Route: 065
     Dates: start: 20250420, end: 20250425
  12. DICLOFENAC [Concomitant]
     Active Substance: DICLOFENAC
     Dates: start: 20250420, end: 20250425
  13. Mecobal [Concomitant]
     Dates: start: 20250420, end: 20250425
  14. Mecobal [Concomitant]
     Route: 065
     Dates: start: 20250420, end: 20250425
  15. Mecobal [Concomitant]
     Route: 065
     Dates: start: 20250420, end: 20250425
  16. Mecobal [Concomitant]
     Dates: start: 20250420, end: 20250425
  17. THIAMINE [Concomitant]
     Active Substance: THIAMINE
     Dates: start: 20250420, end: 20250425
  18. THIAMINE [Concomitant]
     Active Substance: THIAMINE
     Route: 065
     Dates: start: 20250420, end: 20250425
  19. THIAMINE [Concomitant]
     Active Substance: THIAMINE
     Route: 065
     Dates: start: 20250420, end: 20250425
  20. THIAMINE [Concomitant]
     Active Substance: THIAMINE
     Dates: start: 20250420, end: 20250425
  21. B12 ankermann [Concomitant]
     Dates: start: 20250524, end: 20250803
  22. B12 ankermann [Concomitant]
     Route: 065
     Dates: start: 20250524, end: 20250803
  23. B12 ankermann [Concomitant]
     Route: 065
     Dates: start: 20250524, end: 20250803
  24. B12 ankermann [Concomitant]
     Dates: start: 20250524, end: 20250803
  25. PREGABALIN [Concomitant]
     Active Substance: PREGABALIN
  26. PREGABALIN [Concomitant]
     Active Substance: PREGABALIN
     Route: 065
  27. PREGABALIN [Concomitant]
     Active Substance: PREGABALIN
     Route: 065
  28. PREGABALIN [Concomitant]
     Active Substance: PREGABALIN
  29. ENOXAPARIN SODIUM [Concomitant]
     Active Substance: ENOXAPARIN SODIUM
  30. ENOXAPARIN SODIUM [Concomitant]
     Active Substance: ENOXAPARIN SODIUM
     Route: 065
  31. ENOXAPARIN SODIUM [Concomitant]
     Active Substance: ENOXAPARIN SODIUM
     Route: 065
  32. ENOXAPARIN SODIUM [Concomitant]
     Active Substance: ENOXAPARIN SODIUM
  33. Vermectin [Concomitant]
     Dates: start: 20250710, end: 20250712
  34. Vermectin [Concomitant]
     Route: 065
     Dates: start: 20250710, end: 20250712
  35. Vermectin [Concomitant]
     Route: 065
     Dates: start: 20250710, end: 20250712
  36. Vermectin [Concomitant]
     Dates: start: 20250710, end: 20250712
  37. ALLOPURINOL [Concomitant]
     Active Substance: ALLOPURINOL
  38. ALLOPURINOL [Concomitant]
     Active Substance: ALLOPURINOL
     Route: 065
  39. ALLOPURINOL [Concomitant]
     Active Substance: ALLOPURINOL
     Route: 065
  40. ALLOPURINOL [Concomitant]
     Active Substance: ALLOPURINOL
  41. SODIUM BICARBONATE [Concomitant]
     Active Substance: SODIUM BICARBONATE
  42. SODIUM BICARBONATE [Concomitant]
     Active Substance: SODIUM BICARBONATE
     Route: 065
  43. SODIUM BICARBONATE [Concomitant]
     Active Substance: SODIUM BICARBONATE
     Route: 065
  44. SODIUM BICARBONATE [Concomitant]
     Active Substance: SODIUM BICARBONATE
  45. CASTOR OIL [Concomitant]
     Active Substance: CASTOR OIL
     Dates: start: 20250716, end: 20250716
  46. CASTOR OIL [Concomitant]
     Active Substance: CASTOR OIL
     Route: 065
     Dates: start: 20250716, end: 20250716
  47. CASTOR OIL [Concomitant]
     Active Substance: CASTOR OIL
     Route: 065
     Dates: start: 20250716, end: 20250716
  48. CASTOR OIL [Concomitant]
     Active Substance: CASTOR OIL
     Dates: start: 20250716, end: 20250716
  49. DUPHALAC [Concomitant]
     Active Substance: LACTULOSE
  50. DUPHALAC [Concomitant]
     Active Substance: LACTULOSE
     Route: 065
  51. DUPHALAC [Concomitant]
     Active Substance: LACTULOSE
     Route: 065
  52. DUPHALAC [Concomitant]
     Active Substance: LACTULOSE
  53. LORAZEPAM [Concomitant]
     Active Substance: LORAZEPAM
     Dates: start: 20250716, end: 20250717
  54. LORAZEPAM [Concomitant]
     Active Substance: LORAZEPAM
     Route: 065
     Dates: start: 20250716, end: 20250717
  55. LORAZEPAM [Concomitant]
     Active Substance: LORAZEPAM
     Route: 065
     Dates: start: 20250716, end: 20250717
  56. LORAZEPAM [Concomitant]
     Active Substance: LORAZEPAM
     Dates: start: 20250716, end: 20250717
  57. MORPHINE [Concomitant]
     Active Substance: MORPHINE
     Dates: start: 20250716, end: 20250716
  58. MORPHINE [Concomitant]
     Active Substance: MORPHINE
     Route: 065
     Dates: start: 20250716, end: 20250716
  59. MORPHINE [Concomitant]
     Active Substance: MORPHINE
     Route: 065
     Dates: start: 20250716, end: 20250716
  60. MORPHINE [Concomitant]
     Active Substance: MORPHINE
     Dates: start: 20250716, end: 20250716
  61. Neotica balm [Concomitant]
     Dates: start: 20250716, end: 20250718
  62. Neotica balm [Concomitant]
     Route: 065
     Dates: start: 20250716, end: 20250718
  63. Neotica balm [Concomitant]
     Route: 065
     Dates: start: 20250716, end: 20250718
  64. Neotica balm [Concomitant]
     Dates: start: 20250716, end: 20250718
  65. ONDANSETRON HYDROCHLORIDE [Concomitant]
     Active Substance: ONDANSETRON HYDROCHLORIDE
     Dates: start: 20250716, end: 20250716
  66. ONDANSETRON HYDROCHLORIDE [Concomitant]
     Active Substance: ONDANSETRON HYDROCHLORIDE
     Route: 065
     Dates: start: 20250716, end: 20250716
  67. ONDANSETRON HYDROCHLORIDE [Concomitant]
     Active Substance: ONDANSETRON HYDROCHLORIDE
     Route: 065
     Dates: start: 20250716, end: 20250716
  68. ONDANSETRON HYDROCHLORIDE [Concomitant]
     Active Substance: ONDANSETRON HYDROCHLORIDE
     Dates: start: 20250716, end: 20250716
  69. Senolax [Concomitant]
     Dates: start: 20250716, end: 20250716
  70. Senolax [Concomitant]
     Route: 065
     Dates: start: 20250716, end: 20250716
  71. Senolax [Concomitant]
     Route: 065
     Dates: start: 20250716, end: 20250716
  72. Senolax [Concomitant]
     Dates: start: 20250716, end: 20250716
  73. SIMETHICONE (DIMETHICONE) [Concomitant]
     Active Substance: DIMETHICONE
     Dates: start: 20250716, end: 20250717
  74. SIMETHICONE (DIMETHICONE) [Concomitant]
     Active Substance: DIMETHICONE
     Route: 065
     Dates: start: 20250716, end: 20250717
  75. SIMETHICONE (DIMETHICONE) [Concomitant]
     Active Substance: DIMETHICONE
     Route: 065
     Dates: start: 20250716, end: 20250717
  76. SIMETHICONE (DIMETHICONE) [Concomitant]
     Active Substance: DIMETHICONE
     Dates: start: 20250716, end: 20250717
  77. DEXAMETHASONE [Concomitant]
     Active Substance: DEXAMETHASONE
     Dates: start: 20250710, end: 20250806
  78. DEXAMETHASONE [Concomitant]
     Active Substance: DEXAMETHASONE
     Route: 065
     Dates: start: 20250710, end: 20250806
  79. DEXAMETHASONE [Concomitant]
     Active Substance: DEXAMETHASONE
     Route: 065
     Dates: start: 20250710, end: 20250806
  80. DEXAMETHASONE [Concomitant]
     Active Substance: DEXAMETHASONE
     Dates: start: 20250710, end: 20250806
  81. OMEPRAZOLE [Concomitant]
     Active Substance: OMEPRAZOLE
  82. OMEPRAZOLE [Concomitant]
     Active Substance: OMEPRAZOLE
     Route: 065
  83. OMEPRAZOLE [Concomitant]
     Active Substance: OMEPRAZOLE
     Route: 065
  84. OMEPRAZOLE [Concomitant]
     Active Substance: OMEPRAZOLE
  85. DOLUTEGRAVIR\LAMIVUDINE\TENOFOVIR DISOPROXIL FUMARATE [Concomitant]
     Active Substance: DOLUTEGRAVIR\LAMIVUDINE\TENOFOVIR DISOPROXIL FUMARATE
  86. DOLUTEGRAVIR\LAMIVUDINE\TENOFOVIR DISOPROXIL FUMARATE [Concomitant]
     Active Substance: DOLUTEGRAVIR\LAMIVUDINE\TENOFOVIR DISOPROXIL FUMARATE
     Route: 065
  87. DOLUTEGRAVIR\LAMIVUDINE\TENOFOVIR DISOPROXIL FUMARATE [Concomitant]
     Active Substance: DOLUTEGRAVIR\LAMIVUDINE\TENOFOVIR DISOPROXIL FUMARATE
     Route: 065
  88. DOLUTEGRAVIR\LAMIVUDINE\TENOFOVIR DISOPROXIL FUMARATE [Concomitant]
     Active Substance: DOLUTEGRAVIR\LAMIVUDINE\TENOFOVIR DISOPROXIL FUMARATE

REACTIONS (1)
  - Diffuse large B-cell lymphoma [Not Recovered/Not Resolved]

NARRATIVE: CASE EVENT DATE: 20250801
